FAERS Safety Report 4782636-1 (Version None)
Quarter: 2005Q3

REPORT INFORMATION
  Report Type: 
  Country: None (occurrence: None)
  Receive Date: 20050929
  Receipt Date: 20050520
  Transmission Date: 20060218
  Serious: No
  Sender: FDA-Public Use
  Company Number: 405726

PATIENT
  Sex: Female

DRUGS (4)
  1. COREG [Suspect]
     Indication: HYPERTENSION
     Dosage: 6.25MG TWICE PER DAY
     Route: 048
     Dates: start: 20050401
  2. HYDROCHLOROTHIAZIDE [Concomitant]
  3. EVISTA [Concomitant]
  4. LIPITOR [Concomitant]

REACTIONS (3)
  - ABDOMINAL DISTENSION [None]
  - CHEST DISCOMFORT [None]
  - DIARRHOEA [None]
